FAERS Safety Report 5026927-8 (Version None)
Quarter: 2006Q2

REPORT INFORMATION
  Report Type: 
  Country: None (occurrence: None)
  Receive Date: 20060609
  Receipt Date: 20060602
  Transmission Date: 20061013
  Serious: Yes (Life-Threatening, Hospitalization)
  Sender: FDA-Public Use
  Company Number: E2020-00058-CLI-DE

PATIENT
  Age: 84 Year
  Sex: Female
  Weight: 67 kg

DRUGS (5)
  1. DONEPEZIL HCL [Suspect]
     Indication: DEMENTIA ALZHEIMER'S TYPE
     Dosage: SEE IMAGE
     Route: 048
     Dates: start: 20060309, end: 20060406
  2. DONEPEZIL HCL [Suspect]
     Indication: DEMENTIA ALZHEIMER'S TYPE
     Dosage: SEE IMAGE
     Route: 048
     Dates: start: 20060407, end: 20060515
  3. ACETYLSALICYLIC ACID SRT [Concomitant]
  4. DORMICUM (MIDAZOLAM MALEATE) [Concomitant]
  5. KETANEST (KETAMINE) [Concomitant]

REACTIONS (5)
  - CARDIAC ARREST [None]
  - FALL [None]
  - FEMUR FRACTURE [None]
  - SYNCOPE [None]
  - VOMITING [None]
